FAERS Safety Report 18315426 (Version 1)
Quarter: 2020Q3

REPORT INFORMATION
  Report Type: Spontaneous
  Country: US (occurrence: US)
  Receive Date: 20200926
  Receipt Date: 20200926
  Transmission Date: 20201103
  Serious: Yes (Other)
  Sender: FDA-Public Use
  Company Number: US-AMGEN-USASP2020153238

PATIENT
  Age: 22 Year
  Sex: Male

DRUGS (4)
  1. BLINATUMOMAB [Suspect]
     Active Substance: BLINATUMOMAB
     Indication: B PRECURSOR TYPE ACUTE LEUKAEMIA
     Dosage: UNK
     Route: 065
  2. FLUDARABINE [Concomitant]
     Active Substance: FLUDARABINE PHOSPHATE
  3. TISAGENLECLEUCEL?T [Concomitant]
     Active Substance: TISAGENLECLEUCEL
  4. CYCLOPHOSPHAMIDE. [Concomitant]
     Active Substance: CYCLOPHOSPHAMIDE

REACTIONS (12)
  - Seizure [Recovered/Resolved]
  - Sinusitis [Unknown]
  - Bronchopulmonary aspergillosis [Unknown]
  - Aphasia [Unknown]
  - Hemiparesis [Unknown]
  - Pulmonary haemorrhage [Unknown]
  - Pneumonia [Unknown]
  - Headache [Unknown]
  - Central nervous system leukaemia [Unknown]
  - Adrenal insufficiency [Unknown]
  - Bronchiectasis [Unknown]
  - Hypogammaglobulinaemia [Unknown]
